FAERS Safety Report 19887320 (Version 1)
Quarter: 2021Q3

REPORT INFORMATION
  Report Type: Spontaneous
  Country: US (occurrence: US)
  Receive Date: 20210927
  Receipt Date: 20210927
  Transmission Date: 20211014
  Serious: No
  Sender: FDA-Public Use
  Company Number: US-BIOGEN-2021BI01052212

PATIENT
  Age: 40 Year
  Sex: Female

DRUGS (1)
  1. VUMERITY [Suspect]
     Active Substance: DIROXIMEL FUMARATE
     Indication: MULTIPLE SCLEROSIS
     Route: 065
     Dates: start: 20210624

REACTIONS (5)
  - Paraesthesia [Unknown]
  - Suspected COVID-19 [Unknown]
  - Nasopharyngitis [Unknown]
  - Flushing [Unknown]
  - Hot flush [Unknown]

NARRATIVE: CASE EVENT DATE: 202106
